FAERS Safety Report 5643880-4 (Version None)
Quarter: 2008Q1

REPORT INFORMATION
  Report Type: 
  Country: None (occurrence: None)
  Receive Date: 20080226
  Receipt Date: 20080217
  Transmission Date: 20080703
  Serious: Yes (Hospitalization, Other)
  Sender: FDA-Public Use
  Company Number: 2008-00074

PATIENT
  Age: 43 Year
  Sex: Female
  Weight: 79 kg

DRUGS (2)
  1. VELCADE [Suspect]
     Indication: PLASMACYTOMA
     Dosage: 1.30 MG/M2,  IV BOLUS
     Route: 040
     Dates: start: 20071127, end: 20080108
  2. FLAVOPIRIDOL (N/A) VIAL [Suspect]
     Indication: PLASMACYTOMA
     Dosage: 20.00 MG/M2,  INTRAVENOUS
     Route: 042
     Dates: start: 20071127, end: 20080108

REACTIONS (18)
  - ASTHENIA [None]
  - DEHYDRATION [None]
  - DIARRHOEA [None]
  - DISEASE PROGRESSION [None]
  - DRUG EFFECT DECREASED [None]
  - ELECTROLYTE IMBALANCE [None]
  - FATIGUE [None]
  - HEART RATE INCREASED [None]
  - HYPERMAGNESAEMIA [None]
  - HYPOMAGNESAEMIA [None]
  - HYPOPHOSPHATAEMIA [None]
  - HYPOTENSION [None]
  - LETHARGY [None]
  - MALAISE [None]
  - MUSCULAR WEAKNESS [None]
  - NAUSEA [None]
  - ORAL INTAKE REDUCED [None]
  - PERFORMANCE STATUS DECREASED [None]
